FAERS Safety Report 4744689-6 (Version None)
Quarter: 2005Q3

REPORT INFORMATION
  Report Type: 
  Country: None (occurrence: None)
  Receive Date: 20050812
  Receipt Date: 20050812
  Transmission Date: 20060218
  Serious: Yes (Other)
  Sender: FDA-Public Use
  Company Number: None

PATIENT
  Age: 79 Year
  Sex: Male
  Weight: 54.4316 kg

DRUGS (13)
  1. FLOMAX [Suspect]
     Indication: BENIGN PROSTATIC HYPERPLASIA
     Dosage: PO QD
     Route: 048
     Dates: start: 20050101
  2. AVANDIA [Concomitant]
  3. SYNTHROID [Concomitant]
  4. FOLIC ACID [Concomitant]
  5. PLAVIX [Concomitant]
  6. ALLOPURINOL [Concomitant]
  7. VERAPAMIL [Concomitant]
  8. RESTORIL [Concomitant]
  9. ZOCOR [Concomitant]
  10. PHOSPHO [Concomitant]
  11. SEREVENT [Concomitant]
  12. ALBUTEROL [Concomitant]
  13. HUMULIN 70/30 [Concomitant]

REACTIONS (4)
  - CATARACT OPERATION COMPLICATION [None]
  - IRIDOCELE [None]
  - IRIS DISORDER [None]
  - PUPILLARY REFLEX IMPAIRED [None]
